APPROVED DRUG PRODUCT: NIMODIPINE
Active Ingredient: NIMODIPINE
Strength: 30MG
Dosage Form/Route: CAPSULE;ORAL
Application: A201832 | Product #001
Applicant: SOFGEN PHARMACEUTICALS
Approved: Jul 24, 2015 | RLD: No | RS: No | Type: DISCN